FAERS Safety Report 8340951-9 (Version None)
Quarter: 2012Q2

REPORT INFORMATION
  Report Type: 
  Country: None (occurrence: None)
  Receive Date: 20120507
  Receipt Date: 20120504
  Transmission Date: 20120825
  Serious: Yes (Death, Hospitalization)
  Sender: FDA-Public Use
  Company Number: PHHY2012PK038201

PATIENT
  Age: 85 Year
  Sex: Female

DRUGS (2)
  1. CALCIUM [Concomitant]
     Indication: OSTEOPOROSIS
  2. ZOLEDRONOC ACID [Suspect]
     Indication: OSTEOPOROSIS
     Route: 042
     Dates: start: 20110524

REACTIONS (1)
  - PNEUMONIA [None]
